FAERS Safety Report 25910768 (Version 1)
Quarter: 2025Q4

REPORT INFORMATION
  Report Type: Spontaneous
  Country: US (occurrence: US)
  Receive Date: 20251013
  Receipt Date: 20251013
  Transmission Date: 20260118
  Serious: No
  Sender: BAUSCH AND LOMB
  Company Number: US-BAUSCHBL-2025BNL029434

PATIENT
  Age: 68 Year
  Sex: Male

DRUGS (3)
  1. XIIDRA [Suspect]
     Active Substance: LIFITEGRAST
     Indication: Dry eye
     Dosage: 1 GTT BID
     Route: 047
     Dates: start: 2025
  2. MURO 128 [Suspect]
     Active Substance: SODIUM CHLORIDE
     Indication: Corneal erosion
     Dosage: QD
     Route: 047
     Dates: start: 2020, end: 202508
  3. MURO 128 [Suspect]
     Active Substance: SODIUM CHLORIDE
     Indication: Corneal erosion
     Route: 047
     Dates: start: 202508

REACTIONS (5)
  - Burning sensation [Unknown]
  - Eyelid margin crusting [Unknown]
  - Expired product administered [Unknown]
  - Wrong product procured [Unknown]
  - Dry eye [Unknown]

NARRATIVE: CASE EVENT DATE: 20250101
